FAERS Safety Report 11492983 (Version 2)
Quarter: 2015Q3

REPORT INFORMATION
  Report Type: Spontaneous
  Country: IT (occurrence: IT)
  Receive Date: 20150911
  Receipt Date: 20150918
  Transmission Date: 20151125
  Serious: Yes (Other)
  Sender: FDA-Public Use
  Company Number: IT-PFIZER INC-2015232163

PATIENT
  Age: 47 Year
  Sex: Male

DRUGS (7)
  1. TORVAST [Concomitant]
     Active Substance: ATORVASTATIN
     Dosage: UNK
  2. DILATREND [Concomitant]
     Active Substance: CARVEDILOL
     Dosage: UNK
  3. ZYLORIC [Concomitant]
     Active Substance: ALLOPURINOL
     Dosage: UNK
  4. ANTRA [Concomitant]
     Active Substance: OMEPRAZOLE
     Dosage: UNK
  5. TRIATEC [Suspect]
     Active Substance: RAMIPRIL
     Indication: MYOCARDIAL ISCHAEMIA
     Dosage: 5 MG, DAILY
     Route: 048
     Dates: start: 20150602, end: 20150630
  6. CARDIOASPIRIN [Concomitant]
     Active Substance: ASPIRIN
     Dosage: UNK
  7. BRILIQUE [Concomitant]
     Active Substance: TICAGRELOR
     Dosage: UNK

REACTIONS (2)
  - Acute myocardial infarction [Unknown]
  - Hypotension [Recovering/Resolving]

NARRATIVE: CASE EVENT DATE: 20150630
